FAERS Safety Report 5019514-9 (Version None)
Quarter: 2006Q2

REPORT INFORMATION
  Report Type: 
  Country: None (occurrence: None)
  Receive Date: 20060414
  Receipt Date: 20050620
  Transmission Date: 20061013
  Serious: Yes (Other)
  Sender: FDA-Public Use
  Company Number: US-JNJFOC-20050600763

PATIENT
  Age: 26 Year
  Sex: Female

DRUGS (2)
  1. ULTRAM [Suspect]
     Indication: BACK PAIN
  2. LEXAPRO [Suspect]
     Indication: DEPRESSION
     Dosage: GENERIC: ESCITALOPRAM OXALATE
     Dates: start: 20050101, end: 20050223

REACTIONS (2)
  - CONVULSION [None]
  - DRUG INTERACTION [None]
